FAERS Safety Report 9669771 (Version 1)
Quarter: 2013Q4

REPORT INFORMATION
  Report Type: Spontaneous
  Country: US (occurrence: None)
  Receive Date: 20131105
  Receipt Date: 20131105
  Transmission Date: 20140711
  Serious: No
  Sender: FDA-Public Use
  Company Number: None

PATIENT
  Age: 75 Year
  Sex: Female
  Weight: 63.05 kg

DRUGS (13)
  1. NC2 (MCR) LM) [Suspect]
     Indication: HYPOAESTHESIA
     Dosage: PUMPS 4 TIMES A DAY RUBBED ON SKIN
     Route: 061
     Dates: start: 20130612, end: 20131010
  2. NC2 (MCR) LM) [Suspect]
     Indication: MUSCLE SPASMS
     Dosage: PUMPS 4 TIMES A DAY RUBBED ON SKIN
     Route: 061
     Dates: start: 20130612, end: 20131010
  3. DIGOXIN [Concomitant]
  4. NADOLOL [Concomitant]
  5. VASOTEC [Concomitant]
  6. HCTZ [Concomitant]
  7. LIPITOR [Concomitant]
  8. PRADAXA [Concomitant]
  9. SYNTHROID [Concomitant]
  10. POTASSIUM [Concomitant]
  11. CENTRUM SILVER [Concomitant]
  12. VITAMIN B12 [Concomitant]
  13. FISH OIL [Concomitant]

REACTIONS (5)
  - Application site rash [None]
  - Rash erythematous [None]
  - Pruritus [None]
  - Skin exfoliation [None]
  - Skin burning sensation [None]
